FAERS Safety Report 19177059 (Version 1)
Quarter: 2021Q2

REPORT INFORMATION
  Report Type: Report from Study
  Country: BR (occurrence: BR)
  Receive Date: 20210424
  Receipt Date: 20210424
  Transmission Date: 20210717
  Serious: Yes (Other)
  Sender: FDA-Public Use
  Company Number: NVSC2021BR088476

PATIENT
  Age: 71 Year
  Sex: Male

DRUGS (1)
  1. DIOVAN AMLO FIX [Suspect]
     Active Substance: AMLODIPINE\VALSARTAN
     Indication: PRODUCT USED FOR UNKNOWN INDICATION
     Dosage: APPROXIMATELY 2 YEARS AGO STARTED
     Route: 065

REACTIONS (6)
  - Cerebrovascular accident [Unknown]
  - Gait inability [Not Recovered/Not Resolved]
  - Arrhythmia [Unknown]
  - Product dispensing issue [Unknown]
  - Affective disorder [Unknown]
  - Obesity [Unknown]

NARRATIVE: CASE EVENT DATE: 20201028
